FAERS Safety Report 4505769-3 (Version None)
Quarter: 2004Q4

REPORT INFORMATION
  Report Type: 
  Country: None (occurrence: None)
  Receive Date: 20041119
  Receipt Date: 20041110
  Transmission Date: 20050328
  Serious: Yes (Other)
  Sender: FDA-Public Use
  Company Number: SE-GLAXOSMITHKLINE-B0357250A

PATIENT
  Sex: Female

DRUGS (4)
  1. ZYBAN [Suspect]
     Indication: SMOKING CESSATION THERAPY
     Route: 065
  2. TETRALYSAL [Concomitant]
     Route: 065
  3. IRON [Concomitant]
     Route: 065
  4. VITAMIN B-12 [Concomitant]
     Route: 065

REACTIONS (2)
  - HALLUCINATION, VISUAL [None]
  - NICOTINE DEPENDENCE [None]
